FAERS Safety Report 17822218 (Version 1)
Quarter: 2020Q2

REPORT INFORMATION
  Report Type: Spontaneous
  Country: CN (occurrence: CN)
  Receive Date: 20200526
  Receipt Date: 20200526
  Transmission Date: 20200714
  Serious: Yes (Other)
  Sender: FDA-Public Use
  Company Number: CN-PFIZER INC-2020203274

PATIENT
  Age: 73 Year
  Sex: Female
  Weight: 50 kg

DRUGS (2)
  1. DOXOFYLLINE [Suspect]
     Active Substance: DOXOFYLLINE
     Indication: MUSCLE SPASMS
     Dosage: 0.2 G, 2X/DAY
     Route: 041
     Dates: start: 20200511, end: 20200512
  2. SOLU-MEDROL [Suspect]
     Active Substance: METHYLPREDNISOLONE SODIUM SUCCINATE
     Indication: WHEEZING
     Dosage: 40 MG, 2X/DAY
     Route: 041
     Dates: start: 20200511, end: 20200512

REACTIONS (1)
  - Tremor [Recovered/Resolved]

NARRATIVE: CASE EVENT DATE: 20200512
